FAERS Safety Report 5292169-4 (Version None)
Quarter: 2007Q2

REPORT INFORMATION
  Report Type: 
  Country: None (occurrence: None)
  Receive Date: 20070410
  Receipt Date: 20070402
  Transmission Date: 20071010
  Serious: Yes (Life-Threatening)
  Sender: FDA-Public Use
  Company Number: HQWYE528116JAN07

PATIENT
  Sex: Male
  Weight: 75 kg

DRUGS (3)
  1. MITOXANTRONE [Suspect]
     Indication: ACUTE MYELOID LEUKAEMIA
     Dosage: 7 MG/M^2 - 39 MG
     Route: 065
     Dates: start: 20061229, end: 20070102
  2. ETOPOSIDE [Suspect]
     Indication: ACUTE MYELOID LEUKAEMIA
     Dosage: 100 MG/M^2 - 40 MG
     Route: 065
     Dates: start: 20061229, end: 20061231
  3. CYTARABINE [Suspect]
     Indication: ACUTE MYELOID LEUKAEMIA
     Dosage: 100 MG/M^2 1260 MG
     Route: 065
     Dates: start: 20061229, end: 20070103

REACTIONS (1)
  - PULMONARY ALVEOLAR HAEMORRHAGE [None]
